FAERS Safety Report 18312538 (Version 1)
Quarter: 2020Q3

REPORT INFORMATION
  Report Type: Spontaneous
  Country: US (occurrence: US)
  Receive Date: 20200924
  Receipt Date: 20200924
  Transmission Date: 20201103
  Serious: Yes (Hospitalization)
  Sender: FDA-Public Use
  Company Number: None

PATIENT
  Age: 69 Year
  Sex: Male
  Weight: 97.52 kg

DRUGS (1)
  1. SILDENAFIL (SILDENAFIL CITRATE 100MG TAB) [Suspect]
     Active Substance: SILDENAFIL
     Indication: ERECTILE DYSFUNCTION
     Route: 048
     Dates: start: 20200130, end: 20200506

REACTIONS (1)
  - Priapism [None]

NARRATIVE: CASE EVENT DATE: 20200507
